FAERS Safety Report 14201956 (Version 1)
Quarter: 2017Q4

REPORT INFORMATION
  Report Type: Report from Study
  Country: US (occurrence: BR)
  Receive Date: 20171117
  Receipt Date: 20171117
  Transmission Date: 20180321
  Serious: Yes (Other)
  Sender: FDA-Public Use
  Company Number: US-SUNOVION-2017SUN004965

PATIENT
  Age: 64 Year
  Sex: Female
  Weight: 59 kg

DRUGS (5)
  1. INDACATEROL [Suspect]
     Active Substance: INDACATEROL
     Indication: EMPHYSEMA
     Dosage: 150 ?G, BID (MORNING/NIGHT FOR MORE THAN THREE YEARS)
     Route: 055
  2. SEEBRI [Concomitant]
     Active Substance: GLYCOPYRRONIUM
     Dosage: UNKNOWN
  3. ATROVENT [Concomitant]
     Active Substance: IPRATROPIUM BROMIDE
     Dosage: UNKNOWN
  4. OXIMAX [Concomitant]
     Active Substance: MOMETASONE FUROATE
     Dosage: UNKNOWN
  5. INDACATEROL [Suspect]
     Active Substance: INDACATEROL
     Indication: ASTHMA

REACTIONS (5)
  - Fatigue [Unknown]
  - Malaise [Unknown]
  - Drug prescribing error [Unknown]
  - Cardiac disorder [Recovering/Resolving]
  - Pneumonia [Unknown]

NARRATIVE: CASE EVENT DATE: 201701
